FAERS Safety Report 5946623-X (Version None)
Quarter: 2008Q4

REPORT INFORMATION
  Report Type: 
  Country: None (occurrence: None)
  Receive Date: 20081110
  Receipt Date: 20081028
  Transmission Date: 20090506
  Serious: Yes (Other)
  Sender: FDA-Public Use
  Company Number: CN-ROCHE-593528

PATIENT
  Age: 65 Year
  Sex: Male
  Weight: 40 kg

DRUGS (2)
  1. XELODA [Suspect]
     Indication: RECTAL CANCER
     Route: 048
     Dates: start: 20081005
  2. TRAMADOL HYDROCHLORIDE [Concomitant]
     Indication: PAIN
     Route: 048

REACTIONS (3)
  - HALLUCINATION, VISUAL [None]
  - NAUSEA [None]
  - STOMATITIS [None]
